FAERS Safety Report 8037413-5 (Version None)
Quarter: 2012Q1

REPORT INFORMATION
  Report Type: 
  Country: None (occurrence: None)
  Receive Date: 20120111
  Receipt Date: 20120103
  Transmission Date: 20120608
  Serious: Yes (Hospitalization)
  Sender: FDA-Public Use
  Company Number: US-BAYER-2011-055216

PATIENT
  Age: 48 Year
  Sex: Female
  Weight: 74.83 kg

DRUGS (1)
  1. YAZ [Suspect]
     Indication: CONTRACEPTION
     Dosage: UNK
     Dates: start: 20080701, end: 20080701

REACTIONS (7)
  - ERYTHEMA [None]
  - PAIN [None]
  - DEEP VEIN THROMBOSIS [None]
  - VEIN DISORDER [None]
  - FEAR [None]
  - INJURY [None]
  - OEDEMA PERIPHERAL [None]
